FAERS Safety Report 7794261-9 (Version None)
Quarter: 2011Q4

REPORT INFORMATION
  Report Type: 
  Country: None (occurrence: None)
  Receive Date: 20111004
  Receipt Date: 20110927
  Transmission Date: 20120403
  Serious: Yes (Hospitalization)
  Sender: FDA-Public Use
  Company Number: NL-ASTELLAS-2011EU006580

PATIENT
  Sex: Male
  Weight: 77 kg

DRUGS (13)
  1. ACETAMINOPHEN [Concomitant]
     Dosage: 500 MG, QID
     Route: 048
  2. CALCIUM CARBONATE [Concomitant]
     Dosage: 500 MG, UID/QD
     Route: 048
  3. SELOKEEN [Concomitant]
     Dosage: 95 MG, UID/QD
     Route: 048
  4. ADALAT [Concomitant]
     Dosage: 60 MG, UID/QD
     Route: 048
  5. PREDNISOLONE [Concomitant]
     Dosage: 5 MG, UID/QD
     Route: 048
  6. COVERSYL ARGININE [Concomitant]
     Dosage: 5 MG, UID/QD
     Route: 048
  7. ETALPHA [Concomitant]
     Dosage: 0.25 UG, UID/QD
     Route: 048
  8. PRAVASTATIN [Concomitant]
     Dosage: 40 MG, UID/QD
     Route: 048
  9. VENTOLIN HFA [Concomitant]
     Dosage: 200 UG, PRN
     Route: 065
  10. PROGRAF [Suspect]
     Indication: RENAL TRANSPLANT
     Dosage: 1 MG, BID
     Route: 048
     Dates: start: 20060101
  11. EZETIMIBE [Concomitant]
     Dosage: 10 MG, UID/QD
     Route: 048
  12. ALLOPURINOL [Concomitant]
     Dosage: 100 MG, UID/QD
     Route: 048
  13. OMEPRAZOLE [Concomitant]
     Dosage: 20 MG, UID/QD
     Route: 048

REACTIONS (1)
  - PULMONARY EMBOLISM [None]
